FAERS Safety Report 17509627 (Version 1)
Quarter: 2020Q1

REPORT INFORMATION
  Report Type: Spontaneous
  Country: US (occurrence: US)
  Receive Date: 20200306
  Receipt Date: 20200306
  Transmission Date: 20200409
  Serious: No
  Sender: FDA-Public Use
  Company Number: US-TEVA-2020-US-1194942

PATIENT
  Sex: Female

DRUGS (2)
  1. FLUOXETINE [Suspect]
     Active Substance: FLUOXETINE HYDROCHLORIDE
     Route: 065
  2. PERPHENAZINE. [Suspect]
     Active Substance: PERPHENAZINE
     Route: 065

REACTIONS (4)
  - Pyrexia [Unknown]
  - Hypertension [Unknown]
  - Heart rate increased [Unknown]
  - Flushing [Unknown]

NARRATIVE: CASE EVENT DATE: 201912
